FAERS Safety Report 8804432 (Version 2)
Quarter: 2012Q4

REPORT INFORMATION
  Report Type: 
  Country: FR (occurrence: FR)
  Receive Date: 20120924
  Receipt Date: 20120927
  Transmission Date: 20130627
  Serious: Yes (Other)
  Sender: FDA-Public Use
  Company Number: FR-EISAI INC-E7389-03018-SPO-FR

PATIENT
  Sex: Female

DRUGS (3)
  1. HALAVEN [Suspect]
     Dosage: UNKNOWN
     Route: 041
     Dates: start: 201209, end: 201209
  2. HALAVEN [Suspect]
     Dosage: reduced dose
     Route: 041
     Dates: start: 201209
  3. FERVEX [Concomitant]

REACTIONS (1)
  - Drug-induced liver injury [Recovering/Resolving]
